FAERS Safety Report 18687171 (Version 1)
Quarter: 2020Q4

REPORT INFORMATION
  Report Type: Spontaneous
  Country: JP (occurrence: JP)
  Receive Date: 20201231
  Receipt Date: 20201231
  Transmission Date: 20210114
  Serious: Yes (Hospitalization, Other)
  Sender: FDA-Public Use
  Company Number: JP-LUPIN PHARMACEUTICALS INC.-2020-07314

PATIENT
  Age: 48 Year
  Sex: Male

DRUGS (12)
  1. LEVOMEPROMAZINE [Suspect]
     Active Substance: LEVOMEPROMAZINE
     Indication: SCHIZOPHRENIA
     Dosage: 25 MILLIGRAM, QD
     Route: 065
  2. HALOPERIDOL. [Suspect]
     Active Substance: HALOPERIDOL
     Indication: SCHIZOPHRENIA
     Dosage: 3 MILLIGRAM, QD
     Route: 065
  3. CLOZAPINE. [Concomitant]
     Active Substance: CLOZAPINE
     Indication: SCHIZOPHRENIA
     Dosage: 75 MILLIGRAM, QD, STARTING ON DAY 25
     Route: 065
  4. PALIPERIDONE. [Suspect]
     Active Substance: PALIPERIDONE
     Indication: SCHIZOPHRENIA
     Dosage: 6 MILLIGRAM, QD
     Route: 065
  5. BREXPIPRAZOLE [Suspect]
     Active Substance: BREXPIPRAZOLE
     Indication: SCHIZOPHRENIA
     Dosage: 2 MILLIGRAM, QD
     Route: 065
  6. CLOZAPINE. [Concomitant]
     Active Substance: CLOZAPINE
     Dosage: INCREASED BY 12.5 OR 25 MG/D EVERY 6-7 DAYS
     Route: 065
  7. CLOZAPINE. [Concomitant]
     Active Substance: CLOZAPINE
     Dosage: 75 MILLIGRAM, QD, STARTING ON DAY 25
     Route: 065
  8. LITHIUM. [Concomitant]
     Active Substance: LITHIUM
     Indication: WHITE BLOOD CELL COUNT DECREASED
     Dosage: 400 MILLIGRAM, QD
     Route: 065
  9. ARIPIPRAZOLE. [Suspect]
     Active Substance: ARIPIPRAZOLE
     Indication: SCHIZOPHRENIA
     Dosage: 30 MILLIGRAM, QD
     Route: 065
  10. LITHIUM. [Concomitant]
     Active Substance: LITHIUM
     Dosage: 400 MILLIGRAM, QD
     Route: 065
  11. CEFTRIAXONE. [Suspect]
     Active Substance: CEFTRIAXONE
     Indication: PRODUCT USED FOR UNKNOWN INDICATION
     Dosage: UNK
     Route: 065
  12. HALOPERIDOL. [Suspect]
     Active Substance: HALOPERIDOL
     Dosage: 6 MILLIGRAM, QD
     Route: 065

REACTIONS (2)
  - Liver injury [Unknown]
  - Drug ineffective [Unknown]
